FAERS Safety Report 5745373-2 (Version None)
Quarter: 2008Q2

REPORT INFORMATION
  Report Type: 
  Country: None (occurrence: None)
  Receive Date: 20080521
  Receipt Date: 20080519
  Transmission Date: 20081010
  Serious: Yes (Life-Threatening, Hospitalization, Other)
  Sender: FDA-Public Use
  Company Number: AU-JNJFOC-20080503445

PATIENT
  Sex: Female
  Weight: 81.1 kg

DRUGS (2)
  1. NESIRITIDE [Suspect]
     Route: 042
  2. NESIRITIDE [Suspect]
     Indication: CARDIAC FAILURE ACUTE
     Route: 042

REACTIONS (1)
  - PULMONARY EMBOLISM [None]
